FAERS Safety Report 22842814 (Version 6)
Quarter: 2025Q1

REPORT INFORMATION
  Report Type: Report from Study
  Country: DE (occurrence: DE)
  Receive Date: 20230821
  Receipt Date: 20250208
  Transmission Date: 20250409
  Serious: No
  Sender: ROCHE
  Company Number: DE-ROCHE-3408258

PATIENT
  Age: 51 Year
  Sex: Female
  Weight: 68.0 kg

DRUGS (1)
  1. TERIFLUNOMIDE [Suspect]
     Active Substance: TERIFLUNOMIDE
     Indication: Relapsing multiple sclerosis
     Route: 048
     Dates: start: 20210913

REACTIONS (4)
  - Carpal tunnel syndrome [Not Recovered/Not Resolved]
  - COVID-19 [Recovered/Resolved]
  - Hypercholesterolaemia [Unknown]
  - Carpal tunnel syndrome [Not Recovered/Not Resolved]

NARRATIVE: CASE EVENT DATE: 20220101
